FAERS Safety Report 8824831 (Version 1)
Quarter: 2012Q4

REPORT INFORMATION
  Report Type: Report from Study
  Country: US (occurrence: US)
  Receive Date: 20121004
  Receipt Date: 20121004
  Transmission Date: 20130627
  Serious: Yes (Hospitalization)
  Sender: FDA-Public Use
  Company Number: US-JNJFOC-20081104694

PATIENT
  Age: 48 Year
  Sex: Male
  Weight: 112 kg

DRUGS (7)
  1. INFLIXIMAB [Suspect]
     Indication: HEPATITIS C
     Route: 042
     Dates: start: 20080312
  2. PLACEBO [Suspect]
     Indication: HEPATITIS C
     Route: 042
     Dates: start: 20080312
  3. PEG-INTRON [Suspect]
     Indication: HEPATITIS C
     Dosage: dose 120 mcg
     Route: 058
     Dates: start: 20080312
  4. REBETOL [Suspect]
     Indication: HEPATITIS C
     Route: 048
     Dates: start: 20080312, end: 20081114
  5. HYTRIN [Concomitant]
     Route: 048
  6. PROCARDIA XL [Concomitant]
     Route: 048
  7. NORMODYNE [Concomitant]
     Route: 048

REACTIONS (3)
  - Cellulitis [Recovered/Resolved with Sequelae]
  - Bacteraemia [Recovered/Resolved with Sequelae]
  - Staphylococcus test positive [Recovered/Resolved with Sequelae]
